FAERS Safety Report 26140894 (Version 1)
Quarter: 2025Q4

REPORT INFORMATION
  Report Type: Spontaneous
  Country: EU (occurrence: EU)
  Receive Date: 20251210
  Receipt Date: 20251210
  Transmission Date: 20260117
  Serious: Yes (Other)
  Sender: FRESENIUS KABI
  Company Number: None

PATIENT
  Age: 37 Year
  Sex: Male
  Weight: 58 kg

DRUGS (29)
  1. PACLITAXEL [Suspect]
     Active Substance: PACLITAXEL
     Indication: Lung adenocarcinoma
     Dosage: 200 MG/M?
     Route: 042
     Dates: start: 20240215, end: 20240215
  2. PACLITAXEL [Suspect]
     Active Substance: PACLITAXEL
     Dosage: 40 MG/M?
     Route: 042
     Dates: start: 20240315, end: 20240315
  3. PACLITAXEL [Suspect]
     Active Substance: PACLITAXEL
     Dosage: 40 MG/M?
     Route: 042
     Dates: start: 20240321, end: 20240321
  4. PACLITAXEL [Suspect]
     Active Substance: PACLITAXEL
     Dosage: 40 MG/M?
     Route: 042
     Dates: start: 20240328, end: 20240328
  5. KEYTRUDA [Suspect]
     Active Substance: PEMBROLIZUMAB
     Indication: Lung adenocarcinoma
     Route: 042
     Dates: start: 20240215, end: 20240215
  6. CARBOPLATIN [Suspect]
     Active Substance: CARBOPLATIN
     Indication: Lung adenocarcinoma
     Dosage: AUC5
     Route: 042
     Dates: start: 20240215, end: 20240215
  7. CARBOPLATIN [Suspect]
     Active Substance: CARBOPLATIN
     Dosage: AUC2 C1D1
     Route: 042
     Dates: start: 20240315, end: 20240315
  8. CARBOPLATIN [Suspect]
     Active Substance: CARBOPLATIN
     Dosage: AUC2 C1D8
     Route: 042
     Dates: start: 20240321, end: 20240321
  9. CARBOPLATIN [Suspect]
     Active Substance: CARBOPLATIN
     Dosage: AUC2 C1D15
     Route: 042
     Dates: start: 20240328, end: 20240328
  10. AMITRIPTYLINE HYDROCHLORIDE [Concomitant]
     Active Substance: AMITRIPTYLINE HYDROCHLORIDE
     Indication: Product used for unknown indication
     Dosage: 5 DROPS IN THE EVENING
     Route: 048
     Dates: start: 20240208, end: 20240412
  11. SOLUPRED 20 mg, orodispersible tablet [Concomitant]
     Indication: Product used for unknown indication
     Dosage: 40 MG IN THE MORNING?ROA: UNKNOWN
     Dates: start: 20240208, end: 20240412
  12. LOXAPINE [Concomitant]
     Active Substance: LOXAPINE
     Indication: Psychotic disorder
     Dosage: 25 MG/DAY + 10 MG AT NIGHT IF INSOMNIA
     Route: 048
     Dates: start: 20240221, end: 20240322
  13. LOXAPINE [Concomitant]
     Active Substance: LOXAPINE
     Dosage: 5 MG IF NEEDED
     Route: 048
     Dates: start: 20240322
  14. KETAMINE [Concomitant]
     Active Substance: KETAMINE
     Indication: Product used for unknown indication
     Dosage: PCA 290 MG
     Route: 042
     Dates: start: 20240221, end: 20240412
  15. METHADONE [Concomitant]
     Active Substance: METHADONE HYDROCHLORIDE
     Indication: Cancer pain
     Dosage: 15 MG MORNING AND EVENING
     Route: 048
     Dates: start: 20240221, end: 20240412
  16. METHADONE [Concomitant]
     Active Substance: METHADONE HYDROCHLORIDE
     Route: 042
     Dates: start: 20240221, end: 20240412
  17. METHADONE [Concomitant]
     Active Substance: METHADONE HYDROCHLORIDE
     Dosage: 60 MG/D
     Route: 048
     Dates: start: 20240412
  18. METHADONE [Concomitant]
     Active Substance: METHADONE HYDROCHLORIDE
     Dosage: 15 MG IF NEEDED
     Route: 048
     Dates: start: 20240412
  19. APREPITANT [Concomitant]
     Active Substance: APREPITANT
     Indication: Prophylactic chemotherapy
     Dosage: 125 MG TOTAL, D1 CHEMOTHERAPY
     Route: 048
     Dates: start: 20240315, end: 20240315
  20. APREPITANT [Concomitant]
     Active Substance: APREPITANT
     Dosage: 80 MG D2 AND D3 POST-CHEMOTHERAPY
     Route: 048
     Dates: start: 20240316, end: 20240317
  21. ONDANSETRON [Concomitant]
     Active Substance: ONDANSETRON
     Indication: Prophylactic chemotherapy
     Dosage: 8 MG MORNING AND EVENING ON DAY 1 CHEMOTHERAPY
     Route: 048
     Dates: start: 20240315, end: 20240315
  22. ALPRAZOLAM [Concomitant]
     Active Substance: ALPRAZOLAM
     Indication: Anxiety
     Dosage: 0.25 MG IF NEEDED
     Route: 048
     Dates: start: 20240221
  23. GABAPENTIN [Concomitant]
     Active Substance: GABAPENTIN
     Indication: Pain
     Dosage: 2700 MG/D
     Route: 048
     Dates: start: 20240129, end: 20240208
  24. GABAPENTIN [Concomitant]
     Active Substance: GABAPENTIN
     Dosage: 3600 MG/D
     Route: 048
     Dates: start: 20240208, end: 20240412
  25. GABAPENTIN [Concomitant]
     Active Substance: GABAPENTIN
     Dosage: 2700 MG/D
     Route: 048
     Dates: start: 20240412
  26. SKENAN L.P. 30 mg, Extended-release microgranules in capsule form [Concomitant]
     Indication: Pain
     Dosage: 30 MG LP ONE MORNING ONE NIGHT
     Route: 048
     Dates: start: 20240129, end: 20240412
  27. MORPHINE SULFATE [Concomitant]
     Active Substance: MORPHINE SULFATE
     Indication: Pain
     Dosage: 10 MG / 4 HOURS IF NEEDED
     Route: 048
     Dates: start: 20240129, end: 20240412
  28. ACETAMINOPHEN [Concomitant]
     Active Substance: ACETAMINOPHEN
     Indication: Pain
     Dosage: 1 G IF NEEDED
     Route: 048
     Dates: start: 20240129, end: 20240412
  29. ACETAMINOPHEN [Concomitant]
     Active Substance: ACETAMINOPHEN
     Dosage: 500 MG IF NEEDED
     Route: 048
     Dates: start: 20240412

REACTIONS (1)
  - Hepatic cytolysis [Recovered/Resolved]

NARRATIVE: CASE EVENT DATE: 20240305
